FAERS Safety Report 7523394-7 (Version None)
Quarter: 2011Q2

REPORT INFORMATION
  Report Type: 
  Country: None (occurrence: None)
  Receive Date: 20110603
  Receipt Date: 20110527
  Transmission Date: 20111010
  Serious: Yes (Hospitalization)
  Sender: FDA-Public Use
  Company Number: B0723139A

PATIENT
  Age: 55 Year
  Sex: Male

DRUGS (1)
  1. ROSIGLITAZONE MALEATE [Suspect]
     Route: 048
     Dates: end: 20080201

REACTIONS (2)
  - CORONARY ARTERY BYPASS [None]
  - ARTERIAL OCCLUSIVE DISEASE [None]
